FAERS Safety Report 17362241 (Version 2)
Quarter: 2020Q1

REPORT INFORMATION
  Report Type: Spontaneous
  Country: US (occurrence: US)
  Receive Date: 20200203
  Receipt Date: 20200204
  Transmission Date: 20200409
  Serious: Yes (Other)
  Sender: FDA-Public Use
  Company Number: US-PFIZER INC-2020042471

PATIENT
  Age: 59 Year
  Sex: Female
  Weight: 61.23 kg

DRUGS (5)
  1. FIORICET WITH CODEINE [Concomitant]
     Active Substance: ACETAMINOPHEN\BUTALBITAL\CAFFEINE\CODEINE PHOSPHATE
     Indication: PAIN
     Dosage: UNK
  2. LYRICA [Suspect]
     Active Substance: PREGABALIN
     Indication: SURGERY
  3. LYRICA [Suspect]
     Active Substance: PREGABALIN
     Indication: NEURALGIA
  4. LYRICA [Suspect]
     Active Substance: PREGABALIN
     Indication: PAIN
     Dosage: UNK
     Dates: start: 2018
  5. LYRICA [Suspect]
     Active Substance: PREGABALIN
     Indication: JAW FRACTURE

REACTIONS (7)
  - Drug ineffective [Unknown]
  - Gastric infection [Unknown]
  - Weight fluctuation [Unknown]
  - Pain of skin [Not Recovered/Not Resolved]
  - Rash [Unknown]
  - Sunburn [Not Recovered/Not Resolved]
  - Skin infection [Recovering/Resolving]
